FAERS Safety Report 9425323 (Version 1)
Quarter: 2013Q3

REPORT INFORMATION
  Report Type: Spontaneous
  Country: AU (occurrence: AU)
  Receive Date: 20130729
  Receipt Date: 20130729
  Transmission Date: 20140515
  Serious: Yes (Congenital Anomaly)
  Sender: FDA-Public Use
  Company Number: PHHY2013AU078871

PATIENT
  Sex: 0

DRUGS (3)
  1. TEGRETOL [Suspect]
     Dosage: MATERNAL DOSE 1000 MG
     Route: 064
  2. LAMOTRIGINE [Suspect]
     Dosage: UNK UKN, UNK
     Route: 064
  3. PRIMIDONE [Suspect]
     Dosage: UNK UKN, UNK
     Route: 064

REACTIONS (2)
  - Congenital cystic kidney disease [Unknown]
  - Foetal exposure during pregnancy [Unknown]
